FAERS Safety Report 7540670-2 (Version None)
Quarter: 2011Q2

REPORT INFORMATION
  Report Type: 
  Country: None (occurrence: None)
  Receive Date: 20110610
  Receipt Date: 20110531
  Transmission Date: 20111010
  Serious: Yes (Hospitalization)
  Sender: FDA-Public Use
  Company Number: BE-ABBOTT-11P-013-0729543-00

PATIENT
  Sex: Female
  Weight: 59 kg

DRUGS (14)
  1. FERROUS SULFATE TAB [Concomitant]
     Indication: IRON DEFICIENCY
     Dosage: 1 COMP
     Dates: start: 20060610
  2. HALOPERIDOL [Concomitant]
     Indication: INSOMNIA
     Dates: start: 20090101
  3. ACYCLOVIR [Concomitant]
     Dates: start: 20110203, end: 20110210
  4. HUMIRA [Suspect]
     Route: 058
     Dates: end: 20110222
  5. ACYCLOVIR [Concomitant]
     Indication: DERMATOSIS
     Dates: start: 20100715, end: 20100719
  6. ACYCLOVIR [Concomitant]
     Dates: start: 20110127, end: 20110202
  7. ACYCLOVIR [Concomitant]
     Dates: start: 20110211, end: 20110217
  8. HUMIRA [Suspect]
     Indication: CROHN'S DISEASE
     Route: 058
     Dates: start: 20080331, end: 20080331
  9. HUMIRA [Suspect]
     Dosage: WEEK 2
     Route: 058
  10. HUMIRA [Suspect]
     Route: 058
     Dates: start: 20110426
  11. ACYCLOVIR [Concomitant]
     Dates: start: 20110218, end: 20110227
  12. MODURETIC 5-50 [Concomitant]
     Indication: OEDEMA
     Dates: start: 20060601
  13. ACYCLOVIR [Concomitant]
     Indication: ORAL HERPES
     Dates: start: 20100702
  14. ACYCLOVIR [Concomitant]
     Dates: start: 20100720, end: 20110126

REACTIONS (1)
  - DERMATOSIS [None]
